FAERS Safety Report 25416974 (Version 2)
Quarter: 2025Q2

REPORT INFORMATION
  Report Type: Spontaneous
  Country: DE (occurrence: DE)
  Receive Date: 20250610
  Receipt Date: 20250616
  Transmission Date: 20250717
  Serious: Yes (Hospitalization)
  Sender: MYLAN
  Company Number: DE-MMM-Otsuka-YRLOWG27

PATIENT
  Age: 54 Year
  Sex: Female

DRUGS (36)
  1. ARIPIPRAZOLE [Suspect]
     Active Substance: ARIPIPRAZOLE
     Indication: Delusional disorder, unspecified type
     Dosage: 15 MG, DAILY
     Route: 048
     Dates: start: 20250131, end: 20250221
  2. ARIPIPRAZOLE [Suspect]
     Active Substance: ARIPIPRAZOLE
     Dosage: 15 MG, DAILY
     Dates: start: 20250131, end: 20250221
  3. ARIPIPRAZOLE [Suspect]
     Active Substance: ARIPIPRAZOLE
     Dosage: 15 MG, DAILY
     Dates: start: 20250131, end: 20250221
  4. ARIPIPRAZOLE [Suspect]
     Active Substance: ARIPIPRAZOLE
     Dosage: 15 MG, DAILY
     Route: 048
     Dates: start: 20250131, end: 20250221
  5. ARIPIPRAZOLE [Suspect]
     Active Substance: ARIPIPRAZOLE
     Dosage: 5 MG, DAILY
     Route: 048
     Dates: start: 20250105, end: 20250109
  6. ARIPIPRAZOLE [Suspect]
     Active Substance: ARIPIPRAZOLE
     Dosage: 5 MG, DAILY
     Dates: start: 20250105, end: 20250109
  7. ARIPIPRAZOLE [Suspect]
     Active Substance: ARIPIPRAZOLE
     Dosage: 5 MG, DAILY
     Dates: start: 20250105, end: 20250109
  8. ARIPIPRAZOLE [Suspect]
     Active Substance: ARIPIPRAZOLE
     Dosage: 5 MG, DAILY
     Route: 048
     Dates: start: 20250105, end: 20250109
  9. ARIPIPRAZOLE [Suspect]
     Active Substance: ARIPIPRAZOLE
     Dosage: 10 MG, DAILY
     Dates: start: 20250110, end: 20250130
  10. ARIPIPRAZOLE [Suspect]
     Active Substance: ARIPIPRAZOLE
     Dosage: 10 MG, DAILY
     Dates: start: 20250110, end: 20250130
  11. ARIPIPRAZOLE [Suspect]
     Active Substance: ARIPIPRAZOLE
     Dosage: 10 MG, DAILY
     Route: 048
     Dates: start: 20250110, end: 20250130
  12. ARIPIPRAZOLE [Suspect]
     Active Substance: ARIPIPRAZOLE
     Dosage: 10 MG, DAILY
     Route: 048
     Dates: start: 20250110, end: 20250130
  13. ARIPIPRAZOLE [Suspect]
     Active Substance: ARIPIPRAZOLE
     Dosage: 10 MG, DAILY
     Dates: start: 20250222
  14. ARIPIPRAZOLE [Suspect]
     Active Substance: ARIPIPRAZOLE
     Dosage: 10 MG, DAILY
     Dates: start: 20250222
  15. ARIPIPRAZOLE [Suspect]
     Active Substance: ARIPIPRAZOLE
     Dosage: 10 MG, DAILY
     Route: 048
     Dates: start: 20250222
  16. ARIPIPRAZOLE [Suspect]
     Active Substance: ARIPIPRAZOLE
     Dosage: 10 MG, DAILY
     Route: 048
     Dates: start: 20250222
  17. QUETIAPINE [Suspect]
     Active Substance: QUETIAPINE
     Indication: Delusional disorder, unspecified type
     Dosage: 25 MG, DAILY
     Dates: start: 20250111, end: 20250115
  18. QUETIAPINE [Suspect]
     Active Substance: QUETIAPINE
     Dosage: 25 MG, DAILY
     Dates: start: 20250111, end: 20250115
  19. QUETIAPINE [Suspect]
     Active Substance: QUETIAPINE
     Dosage: 25 MG, DAILY
     Route: 048
     Dates: start: 20250111, end: 20250115
  20. QUETIAPINE [Suspect]
     Active Substance: QUETIAPINE
     Dosage: 25 MG, DAILY
     Route: 048
     Dates: start: 20250111, end: 20250115
  21. QUETIAPINE [Suspect]
     Active Substance: QUETIAPINE
     Dosage: 50 MG, DAILY
     Dates: start: 20250116, end: 20250130
  22. QUETIAPINE [Suspect]
     Active Substance: QUETIAPINE
     Dosage: 50 MG, DAILY
     Dates: start: 20250116, end: 20250130
  23. QUETIAPINE [Suspect]
     Active Substance: QUETIAPINE
     Dosage: 50 MG, DAILY
     Route: 048
     Dates: start: 20250116, end: 20250130
  24. QUETIAPINE [Suspect]
     Active Substance: QUETIAPINE
     Dosage: 50 MG, DAILY
     Route: 048
     Dates: start: 20250116, end: 20250130
  25. QUETIAPINE [Suspect]
     Active Substance: QUETIAPINE
     Dosage: 25 MG, DAILY
     Dates: start: 20250131
  26. QUETIAPINE [Suspect]
     Active Substance: QUETIAPINE
     Dosage: 25 MG, DAILY
     Route: 048
     Dates: start: 20250131
  27. QUETIAPINE [Suspect]
     Active Substance: QUETIAPINE
     Dosage: 25 MG, DAILY
     Dates: start: 20250131
  28. QUETIAPINE [Suspect]
     Active Substance: QUETIAPINE
     Dosage: 25 MG, DAILY
     Route: 048
     Dates: start: 20250131
  29. TELMISARTAN [Concomitant]
     Active Substance: TELMISARTAN
     Indication: Hypertension
     Dosage: 80 MG, DAILY
     Dates: start: 20250130
  30. TELMISARTAN [Concomitant]
     Active Substance: TELMISARTAN
     Dosage: 80 MG, DAILY
     Route: 048
     Dates: start: 20250130
  31. TELMISARTAN [Concomitant]
     Active Substance: TELMISARTAN
     Dosage: 80 MG, DAILY
     Route: 048
     Dates: start: 20250130
  32. TELMISARTAN [Concomitant]
     Active Substance: TELMISARTAN
     Dosage: 80 MG, DAILY
     Dates: start: 20250130
  33. HYDROCHLOROTHIAZIDE [Concomitant]
     Active Substance: HYDROCHLOROTHIAZIDE
     Indication: Diuretic therapy
     Dosage: 12.5 MG, DAILY
     Dates: start: 20250130
  34. HYDROCHLOROTHIAZIDE [Concomitant]
     Active Substance: HYDROCHLOROTHIAZIDE
     Dosage: 12.5 MG, DAILY
     Route: 048
     Dates: start: 20250130
  35. HYDROCHLOROTHIAZIDE [Concomitant]
     Active Substance: HYDROCHLOROTHIAZIDE
     Dosage: 12.5 MG, DAILY
     Route: 048
     Dates: start: 20250130
  36. HYDROCHLOROTHIAZIDE [Concomitant]
     Active Substance: HYDROCHLOROTHIAZIDE
     Dosage: 12.5 MG, DAILY
     Dates: start: 20250130

REACTIONS (2)
  - Headache [Recovered/Resolved]
  - Product use in unapproved indication [Unknown]

NARRATIVE: CASE EVENT DATE: 20250105
